FAERS Safety Report 13677228 (Version 1)
Quarter: 2017Q2

REPORT INFORMATION
  Report Type: Spontaneous
  Country: US (occurrence: US)
  Receive Date: 20170622
  Receipt Date: 20170622
  Transmission Date: 20170830
  Serious: No
  Sender: FDA-Public Use
  Company Number: US-APOTEX-2016AP010241

PATIENT
  Sex: Female

DRUGS (3)
  1. CYCLOSPORINE. [Suspect]
     Active Substance: CYCLOSPORINE
     Dosage: 75 MG, BID
     Route: 065
  2. OTEZLA [Concomitant]
     Active Substance: APREMILAST
     Indication: PRODUCT USED FOR UNKNOWN INDICATION
     Dosage: UNK
     Route: 065
  3. CYCLOSPORINE. [Suspect]
     Active Substance: CYCLOSPORINE
     Indication: PRODUCT USED FOR UNKNOWN INDICATION
     Dosage: 250 MG, UNK
     Route: 065
     Dates: start: 201603

REACTIONS (3)
  - Intraocular pressure increased [Unknown]
  - Headache [Not Recovered/Not Resolved]
  - Migraine [Unknown]
